FAERS Safety Report 9708647 (Version 1)
Quarter: 2013Q4

REPORT INFORMATION
  Report Type: Spontaneous
  Country: PT (occurrence: PT)
  Receive Date: 20131125
  Receipt Date: 20131125
  Transmission Date: 20140711
  Serious: Yes (Other)
  Sender: FDA-Public Use
  Company Number: PT-ACTAVIS-2013-21488

PATIENT
  Age: 71 Year
  Sex: Female

DRUGS (4)
  1. PACLITAXEL ACTAVIS [Suspect]
     Indication: BREAST CANCER
     Dosage: 120 MG, 1/WEEK
     Route: 042
     Dates: start: 20131024, end: 20131031
  2. CLEMASTINE [Concomitant]
     Indication: ALLERGY PROPHYLAXIS
     Dosage: 2 MG, DAILY
     Route: 042
  3. METILPREDNISOLONE [Concomitant]
     Indication: ALLERGY PROPHYLAXIS
     Dosage: 125 MG, DAILY
     Route: 042
  4. RANITIDINE [Concomitant]
     Indication: PROPHYLAXIS AGAINST GASTROINTESTINAL ULCER
     Dosage: 50 MG, DAILY
     Route: 042

REACTIONS (3)
  - Tremor [Recovered/Resolved]
  - Back pain [Recovered/Resolved]
  - Flushing [Recovered/Resolved]
